FAERS Safety Report 24761784 (Version 1)
Quarter: 2024Q4

REPORT INFORMATION
  Report Type: Spontaneous
  Country: US (occurrence: US)
  Receive Date: 20241220
  Receipt Date: 20241220
  Transmission Date: 20250115
  Serious: No
  Sender: ACCORD
  Company Number: US-Accord-420505

PATIENT
  Sex: Female

DRUGS (1)
  1. FINGOLIMOD [Suspect]
     Active Substance: FINGOLIMOD
     Indication: Multiple sclerosis
     Dosage: IN THE MORNING
     Route: 048

REACTIONS (3)
  - Gastrooesophageal reflux disease [Unknown]
  - Asthenia [Unknown]
  - Fatigue [Unknown]
